FAERS Safety Report 11514513 (Version 1)
Quarter: 2015Q3

REPORT INFORMATION
  Report Type: Spontaneous
  Country: US (occurrence: US)
  Receive Date: 20150916
  Receipt Date: 20150916
  Transmission Date: 20151125
  Serious: Yes (Hospitalization)
  Sender: FDA-Public Use
  Company Number: US-SMITH AND NEPHEW, INC-2015SMT00303

PATIENT
  Sex: Female
  Weight: 69.39 kg

DRUGS (1)
  1. REGRANEX [Suspect]
     Active Substance: BECAPLERMIN
     Indication: SKIN ULCER
     Dosage: UNK UNK, 1X/DAY
     Route: 061
     Dates: start: 2015, end: 201507

REACTIONS (5)
  - Burn infection [Recovered/Resolved]
  - Thermal burn [Recovered/Resolved]
  - Cellulitis [Recovered/Resolved]
  - Application site discharge [Recovering/Resolving]
  - Application site scab [Recovering/Resolving]

NARRATIVE: CASE EVENT DATE: 2015
